FAERS Safety Report 16675363 (Version 3)
Quarter: 2022Q4

REPORT INFORMATION
  Report Type: Spontaneous
  Country: US (occurrence: US)
  Receive Date: 20190806
  Receipt Date: 20221104
  Transmission Date: 20230112
  Serious: Yes (Death)
  Sender: FDA-Public Use
  Company Number: US-VERTEX PHARMACEUTICALS-2019-007191

PATIENT
  Age: 49 Year
  Sex: Male

DRUGS (1)
  1. KALYDECO [Suspect]
     Active Substance: IVACAFTOR
     Indication: Cystic fibrosis
     Dosage: 150 MG, BID (REGULAR DOSE)
     Route: 048
     Dates: start: 20120420, end: 20190717

REACTIONS (4)
  - Death [Fatal]
  - Infection [Unknown]
  - Lung disorder [Unknown]
  - Myocardial injury [Unknown]

NARRATIVE: CASE EVENT DATE: 20190717
